FAERS Safety Report 8802965 (Version 1)
Quarter: 2012Q4

REPORT INFORMATION
  Report Type: 
  Country: AR (occurrence: AR)
  Receive Date: 20120924
  Receipt Date: 20120924
  Transmission Date: 20130627
  Serious: Yes (Other)
  Sender: FDA-Public Use
  Company Number: PHHY2012AR081835

PATIENT
  Age: 66 None
  Sex: Female

DRUGS (1)
  1. ONBREZ [Suspect]
     Indication: CHRONIC OBSTRUCTIVE PULMONARY DISEASE
     Dosage: 300 ug, QD
     Dates: start: 20110423, end: 201106

REACTIONS (5)
  - Bronchitis [Recovered/Resolved]
  - Fracture [Recovering/Resolving]
  - Fall [Unknown]
  - Cough [Unknown]
  - Fractured coccyx [None]
